FAERS Safety Report 4843658-5 (Version None)
Quarter: 2005Q4

REPORT INFORMATION
  Report Type: 
  Country: None (occurrence: None)
  Receive Date: 20051129
  Receipt Date: 20051109
  Transmission Date: 20060501
  Serious: Yes (Other)
  Sender: FDA-Public Use
  Company Number: CA200511000935

PATIENT
  Age: 57 Year
  Sex: Female

DRUGS (1)
  1. ZYPREXA [Suspect]
     Dates: start: 20020101

REACTIONS (2)
  - DIABETES MELLITUS [None]
  - THYROID GLAND CANCER [None]
